FAERS Safety Report 4804807-8 (Version None)
Quarter: 2005Q4

REPORT INFORMATION
  Report Type: 
  Country: None (occurrence: None)
  Receive Date: 20051017
  Receipt Date: 20051006
  Transmission Date: 20060501
  Serious: Yes (Hospitalization, Other)
  Sender: FDA-Public Use
  Company Number: 2005139150

PATIENT
  Age: 82 Year
  Sex: Female
  Weight: 60.782 kg

DRUGS (1)
  1. LIPITOR [Suspect]
     Indication: ILL-DEFINED DISORDER

REACTIONS (3)
  - CARDIOVASCULAR DISORDER [None]
  - DIZZINESS [None]
  - HOT FLUSH [None]
